FAERS Safety Report 21619553 (Version 3)
Quarter: 2023Q2

REPORT INFORMATION
  Report Type: Spontaneous
  Country: US (occurrence: US)
  Receive Date: 20221121
  Receipt Date: 20230509
  Transmission Date: 20230722
  Serious: Yes (Other)
  Sender: FDA-Public Use
  Company Number: US-PFIZER INC-202201304929

PATIENT
  Age: 61 Year
  Sex: Female

DRUGS (1)
  1. XELJANZ [Suspect]
     Active Substance: TOFACITINIB CITRATE
     Indication: Psoriatic arthropathy
     Dosage: 5 MG, 2X/DAY
     Route: 048
     Dates: start: 201812

REACTIONS (10)
  - Psoriatic arthropathy [Unknown]
  - Shoulder arthroplasty [Unknown]
  - Carpal tunnel syndrome [Unknown]
  - Osteoarthritis [Unknown]
  - Joint swelling [Unknown]
  - Arthralgia [Unknown]
  - Musculoskeletal stiffness [Unknown]
  - Condition aggravated [Unknown]
  - COVID-19 [Unknown]
  - Nausea [Unknown]

NARRATIVE: CASE EVENT DATE: 20211228
